FAERS Safety Report 5197138-0 (Version None)
Quarter: 2006Q4

REPORT INFORMATION
  Report Type: 
  Country: None (occurrence: None)
  Receive Date: 20061227
  Receipt Date: 20061214
  Transmission Date: 20070319
  Serious: Yes (Life-Threatening, Hospitalization)
  Sender: FDA-Public Use
  Company Number: 2006154257

PATIENT
  Age: 29 Year
  Sex: Male
  Weight: 90 kg

DRUGS (5)
  1. SU-011,248(SUNITINIB  MALATE) [Suspect]
     Indication: METASTATIC RENAL CELL CARCINOMA
     Dosage: 50 MG,OD: 4 WEEKS ON / 2 WEEKS OFF, ORAL
     Route: 048
     Dates: start: 20060515, end: 20061126
  2. PARACETAMOL [Concomitant]
  3. LANSOPRAZOLE [Concomitant]
  4. FRAGMIN [Concomitant]
  5. METOCLOPRAMIDE HYDROCHLORIDE [Concomitant]

REACTIONS (9)
  - ANOREXIA [None]
  - BACK PAIN [None]
  - BLOOD CALCIUM DECREASED [None]
  - BLOOD CHLORIDE DECREASED [None]
  - BLOOD SODIUM DECREASED [None]
  - DIPLEGIA [None]
  - DYSPNOEA [None]
  - PLEURAL EFFUSION [None]
  - URINARY INCONTINENCE [None]
